FAERS Safety Report 7945192-2 (Version None)
Quarter: 2011Q4

REPORT INFORMATION
  Report Type: 
  Country: None (occurrence: None)
  Receive Date: 20111129
  Receipt Date: 20111116
  Transmission Date: 20120403
  Serious: Yes (Hospitalization)
  Sender: FDA-Public Use
  Company Number: FR-US-EMD SERONO, INC.-7096604

PATIENT
  Age: 26 Year
  Sex: Female

DRUGS (3)
  1. CHORIONIC GONADOTROPIN [Suspect]
     Indication: IN VITRO FERTILISATION
     Route: 030
  2. GONAL-F [Suspect]
     Indication: IN VITRO FERTILISATION
     Route: 058
  3. GONADORELIN INJ [Suspect]
     Indication: IN VITRO FERTILISATION
     Route: 030

REACTIONS (2)
  - URETERIC INJURY [None]
  - OVARIAN HYPERSTIMULATION SYNDROME [None]
